FAERS Safety Report 17069743 (Version 1)
Quarter: 2019Q4

REPORT INFORMATION
  Report Type: Spontaneous
  Country: DE (occurrence: DE)
  Receive Date: 20191125
  Receipt Date: 20191125
  Transmission Date: 20200122
  Serious: Yes (Other)
  Sender: FDA-Public Use
  Company Number: DE-ROCHE-2472749

PATIENT
  Sex: Female

DRUGS (14)
  1. FULVESTRANT. [Suspect]
     Active Substance: FULVESTRANT
     Route: 065
     Dates: start: 201310, end: 201402
  2. ANASTROZOLE. [Suspect]
     Active Substance: ANASTROZOLE
     Indication: BREAST CANCER METASTATIC
     Dosage: IN /DEC/2016, SHE RECEIVED MOST RECENT DOSE OF ANASTROZOLE.
     Route: 065
     Dates: start: 201509
  3. EVEROLIMUS. [Suspect]
     Active Substance: EVEROLIMUS
     Indication: BREAST CANCER METASTATIC
     Dosage: IN /APR/2015, SHE RECEIVED MOST RECENT DOSE OF EVEROLIMUS.
     Route: 065
     Dates: start: 201410
  4. CYCLOPHOSPHAMIDE. [Suspect]
     Active Substance: CYCLOPHOSPHAMIDE
     Indication: BREAST CANCER METASTATIC
     Dosage: IN /SEP/2018, SHE RECEIVED MOST RECENT DOSE OF CYCLOPHOSPHAMIDE.
     Route: 065
     Dates: start: 201807
  5. EXEMESTANE. [Suspect]
     Active Substance: EXEMESTANE
     Indication: BREAST CANCER METASTATIC
     Dosage: IN /APR/2015, SHE RECEIVED MOST RECENT DOSE OF EXEMESTANE.
     Route: 065
     Dates: start: 201410
  6. EPIRUBICIN [Suspect]
     Active Substance: EPIRUBICIN
     Indication: BREAST CANCER METASTATIC
     Dosage: IN /SEP/2018, SHE RECEIVED MOST RECENT DOSE OF EPIRUBICIN.
     Route: 065
     Dates: start: 201807
  7. TAMOXIFEN [Suspect]
     Active Substance: TAMOXIFEN
     Indication: BREAST CANCER METASTATIC
     Route: 065
     Dates: start: 201903
  8. CAPECITABINE. [Suspect]
     Active Substance: CAPECITABINE
     Indication: PRODUCT USED FOR UNKNOWN INDICATION
     Dosage: IN OCT/2014, SHE RECEIVED MOST RECENT DOSE OF CAPECITABINE.
     Route: 048
     Dates: start: 201402
  9. GEMCITABINE. [Suspect]
     Active Substance: GEMCITABINE
     Indication: BREAST CANCER METASTATIC
     Dosage: IN /FEB/2019, SHE RECEIVED MOST RECENT DOSE OF GEMCITABINE.
     Route: 065
     Dates: start: 201812
  10. VINORELBINE [Suspect]
     Active Substance: VINORELBINE TARTRATE
     Indication: PRODUCT USED FOR UNKNOWN INDICATION
     Dosage: IN /JUN/2014, SHE RECEIVED MOST RECENT DOSE OF VINORELBINE.
     Route: 065
     Dates: start: 201402
  11. LETROZOLE. [Suspect]
     Active Substance: LETROZOLE
     Indication: BREAST CANCER METASTATIC
     Dosage: IN /OCT/2013, SHE RECEIVED MOST RECENT DOSE OF LETROZOLE.
     Route: 065
     Dates: start: 201107
  12. PACLITAXEL. [Suspect]
     Active Substance: PACLITAXEL
     Indication: BREAST CANCER METASTATIC
     Dosage: IN /SEP/2015, SHE RECEIVED MOST RECENT DOSE OF PACLITAXEL.
     Route: 065
     Dates: start: 201504
  13. FULVESTRANT. [Suspect]
     Active Substance: FULVESTRANT
     Indication: BREAST CANCER METASTATIC
     Dosage: IN /MAY/2018, SHE RECEIVED MOST RECENT DOSE OF FULVESTRANT.
     Route: 065
     Dates: start: 201702
  14. CARBOPLATIN. [Suspect]
     Active Substance: CARBOPLATIN
     Indication: BREAST CANCER METASTATIC
     Dosage: IN /FEB/2019, SHE RECEIVED MOST RECENT DOSE OF CARBOPLATIN.
     Route: 065
     Dates: start: 201812

REACTIONS (4)
  - Pleural effusion [Unknown]
  - Polyneuropathy [Unknown]
  - Dyspnoea [Unknown]
  - Metastases to liver [Unknown]
